FAERS Safety Report 4292017-5 (Version None)
Quarter: 2004Q1

REPORT INFORMATION
  Report Type: 
  Country: None (occurrence: None)
  Receive Date: 20040126
  Receipt Date: 20030903
  Transmission Date: 20041129
  Serious: No
  Sender: FDA-Public Use
  Company Number: USA030946063

PATIENT
  Age: 73 Year
  Sex: Female
  Weight: 60 kg

DRUGS (5)
  1. FORTEO [Suspect]
     Indication: OSTEOPOROSIS
     Dosage: 20 UG/DAY
     Dates: start: 20030804
  2. OSCAL 500-D [Concomitant]
  3. GLUCOSAMINE CHONDOITIN [Concomitant]
  4. VITAMIN B COMPLEX CAP [Concomitant]
  5. MULTIVITAMIN [Concomitant]

REACTIONS (2)
  - INJECTION SITE DISCOLOURATION [None]
  - INJECTION SITE HAEMORRHAGE [None]
